FAERS Safety Report 21104844 (Version 2)
Quarter: 2022Q3

REPORT INFORMATION
  Report Type: Other
  Country: ES (occurrence: None)
  Receive Date: 20220720
  Receipt Date: 20220811
  Transmission Date: 20221027
  Serious: Yes (Other)
  Sender: FDA-Public Use
  Company Number: ES-ROCHE-3140043

PATIENT
  Age: 75 Year
  Sex: Female

DRUGS (3)
  1. HERCEPTIN [Suspect]
     Active Substance: TRASTUZUMAB
     Indication: Breast cancer
     Dosage: FOR 12 MONTHS
     Route: 065
  2. TAXOTERE [Suspect]
     Active Substance: DOCETAXEL
     Indication: Breast cancer
     Dosage: 75 MG/ML, FOR 6 CYCLES
     Route: 065
  3. CARBOPLATIN [Suspect]
     Active Substance: CARBOPLATIN
     Indication: Breast cancer
     Dosage: AREA UNDER CURVE (AUC) 6, A TOTAL OF SIX CYCLES
     Route: 065

REACTIONS (8)
  - Blepharitis [Unknown]
  - Meibomianitis [Unknown]
  - Anal inflammation [Recovering/Resolving]
  - Noninfective conjunctivitis [Recovering/Resolving]
  - Vulvovaginal inflammation [Recovering/Resolving]
  - Trichiasis [Unknown]
  - Entropion [Unknown]
  - Dry eye [Unknown]
